FAERS Safety Report 8975035 (Version 2)
Quarter: 2013Q1

REPORT INFORMATION
  Report Type: Spontaneous
  Country: JP (occurrence: JP)
  Receive Date: 20121220
  Receipt Date: 20130205
  Transmission Date: 20140127
  Serious: No
  Sender: FDA-Public Use
  Company Number: JP-ELI_LILLY_AND_COMPANY-JP201211005994

PATIENT
  Age: 80 Year
  Sex: Female

DRUGS (10)
  1. FORTEO [Suspect]
     Indication: OSTEOPOROSIS
     Dosage: 20 UG, QD
     Route: 058
     Dates: start: 20120608, end: 20121207
  2. PRORENAL [Concomitant]
     Indication: PAIN
     Dosage: 5 UG, TID
     Route: 048
     Dates: start: 20120831
  3. METHYCOBAL [Concomitant]
     Indication: NEUROPATHY PERIPHERAL
     Dosage: 500 UG, TID
     Route: 048
     Dates: start: 20120831
  4. BAYASPIRIN [Concomitant]
     Indication: ANGINA PECTORIS
     Dosage: UNK
     Route: 048
  5. DIOVAN [Concomitant]
     Indication: HYPERTENSION
     Dosage: UNK
     Route: 048
  6. NIFEDIPIN [Concomitant]
     Indication: ANGINA PECTORIS
     Dosage: UNK
     Route: 048
  7. CRESTOR [Concomitant]
     Indication: HYPERLIPIDAEMIA
     Dosage: UNK
     Route: 048
  8. IBURONOL [Concomitant]
     Indication: DIZZINESS
     Dosage: UNK
     Route: 048
  9. AMOBAN [Concomitant]
     Indication: INSOMNIA
     Dosage: UNK
     Route: 048
  10. SUVENYL [Concomitant]
     Dosage: 20 MG, OTHER
     Route: 014

REACTIONS (1)
  - Arrhythmia [Recovered/Resolved]
